FAERS Safety Report 13000934 (Version 1)
Quarter: 2016Q4

REPORT INFORMATION
  Report Type: Spontaneous
  Country: US (occurrence: US)
  Receive Date: 20161206
  Receipt Date: 20161206
  Transmission Date: 20170207
  Serious: Yes (Congenital Anomaly)
  Sender: FDA-Public Use
  Company Number: US-CIPLA LTD.-2016US22542

PATIENT

DRUGS (4)
  1. STAVUDINE. [Suspect]
     Active Substance: STAVUDINE
     Dosage: UNK, SECOND AND THIRD TRIMESTER EXPOSURE
     Route: 064
  2. RITONAVIR. [Suspect]
     Active Substance: RITONAVIR
     Dosage: UNK, SECOND TRIMESTER EXPOSURE
     Route: 064
  3. LAMIVUDINE. [Suspect]
     Active Substance: LAMIVUDINE
     Dosage: UNK, DURING SECOND AND THIRD TRIMESTER
     Route: 064
  4. LOPINAVIR [Suspect]
     Active Substance: LOPINAVIR
     Dosage: UNK, SECOND TRIMESTER EXPOSURE
     Route: 064

REACTIONS (2)
  - Foetal exposure during pregnancy [Unknown]
  - Chordee [Unknown]
